FAERS Safety Report 6810552-X (Version None)
Quarter: 2010Q2

REPORT INFORMATION
  Report Type: 
  Country: None (occurrence: None)
  Receive Date: 20100630
  Receipt Date: 20100621
  Transmission Date: 20101027
  Serious: Yes (Other)
  Sender: FDA-Public Use
  Company Number: BR-GENENTECH-287721

PATIENT
  Sex: Male
  Weight: 53 kg

DRUGS (4)
  1. MABTHERA [Suspect]
     Indication: ANAEMIA HAEMOLYTIC AUTOIMMUNE
     Dosage: 427.5 MG/M2, UNK
     Route: 042
     Dates: start: 20040201, end: 20040801
  2. MABTHERA [Suspect]
     Dosage: 427.5 MG/M2, UNK
     Route: 042
     Dates: start: 20050101, end: 20050701
  3. MABTHERA [Suspect]
     Dosage: 427.5 MG/M2, UNK
     Route: 042
     Dates: start: 20051201, end: 20051201
  4. IMMUNE GLOBULIN INTRAVENOUS (HUMAN) [Concomitant]
     Indication: DRUG USE FOR UNKNOWN INDICATION
     Route: 042

REACTIONS (4)
  - B-LYMPHOCYTE COUNT DECREASED [None]
  - HYPOGAMMAGLOBULINAEMIA [None]
  - IMMUNOGLOBULINS DECREASED [None]
  - SINUSITIS [None]
